FAERS Safety Report 23061955 (Version 1)
Quarter: 2023Q4

REPORT INFORMATION
  Report Type: Spontaneous
  Country: US (occurrence: US)
  Receive Date: 20231013
  Receipt Date: 20231013
  Transmission Date: 20240110
  Serious: No
  Sender: FDA-Public Use
  Company Number: US-APOTEX-2022AP016635

PATIENT
  Sex: Female

DRUGS (1)
  1. FLUTICASONE PROPIONATE [Suspect]
     Active Substance: FLUTICASONE PROPIONATE
     Indication: Product used for unknown indication
     Dosage: 2 DOSAGE FORM, QD (1 SPRAY PER NOSTRIL)
     Route: 045

REACTIONS (4)
  - Expired product administered [Unknown]
  - Incorrect dose administered [Unknown]
  - Product packaging quantity issue [Unknown]
  - Product label issue [Unknown]
